FAERS Safety Report 22620627 (Version 22)
Quarter: 2025Q1

REPORT INFORMATION
  Report Type: Spontaneous
  Country: US (occurrence: US)
  Receive Date: 20230620
  Receipt Date: 20250128
  Transmission Date: 20250409
  Serious: Yes (Hospitalization, Other)
  Sender: PFIZER
  Company Number: US-PFIZER INC-PV202300106154

PATIENT
  Age: 76 Year
  Sex: Female
  Weight: 86.18 kg

DRUGS (7)
  1. BOSULIF [Suspect]
     Active Substance: BOSUTINIB MONOHYDRATE
     Indication: Philadelphia positive acute lymphocytic leukaemia
     Dosage: 500 MG, 1X/DAY (FOR 30 DAYS)
     Route: 048
     Dates: start: 202302
  2. BOSULIF [Suspect]
     Active Substance: BOSUTINIB MONOHYDRATE
     Dosage: 600 MG, 1X/DAY (ONE 500MG TABLET AND ONE 100MG TABLET ONCE A DAY FOR A TOTAL OF 600 MG DAILY)
     Route: 048
  3. BOSULIF [Suspect]
     Active Substance: BOSUTINIB MONOHYDRATE
     Dosage: TAKE 2 TABLETS (200 MG TOTAL), DAILY
     Route: 048
  4. BOSULIF [Suspect]
     Active Substance: BOSUTINIB MONOHYDRATE
     Dosage: TAKE 3 TABLETS (300 MG TOTAL), DAILY
     Route: 048
  5. BOSULIF [Suspect]
     Active Substance: BOSUTINIB MONOHYDRATE
     Dosage: TAKE 4 TABLETS (400 MG TOTAL), DAILY
     Route: 048
  6. BOSULIF [Suspect]
     Active Substance: BOSUTINIB MONOHYDRATE
     Dosage: TAKE 5 TABLETS (500 MG TOTAL), DAILY
     Route: 048
  7. BOSULIF [Suspect]
     Active Substance: BOSUTINIB MONOHYDRATE

REACTIONS (6)
  - Diarrhoea [Recovered/Resolved]
  - Philadelphia chromosome positive [Recovered/Resolved]
  - Loss of consciousness [Unknown]
  - Seizure [Unknown]
  - Dizziness [Not Recovered/Not Resolved]
  - Off label use [Unknown]

NARRATIVE: CASE EVENT DATE: 20230201
